FAERS Safety Report 14557830 (Version 1)
Quarter: 2018Q1

REPORT INFORMATION
  Report Type: Spontaneous
  Country: US (occurrence: US)
  Receive Date: 20180221
  Receipt Date: 20180221
  Transmission Date: 20180509
  Serious: No
  Sender: FDA-Public Use
  Company Number: US-009507513-1801USA014251

PATIENT
  Age: 22 Year
  Sex: Female
  Weight: 54.5 kg

DRUGS (1)
  1. NEXPLANON [Suspect]
     Active Substance: ETONOGESTREL
     Indication: ACNE
     Dosage: 1 DF, LEFT ARM, EVERY 3 YEARS
     Route: 059
     Dates: start: 20171201

REACTIONS (4)
  - Product use in unapproved indication [Unknown]
  - Menorrhagia [Unknown]
  - Malaise [Unknown]
  - Fatigue [Unknown]

NARRATIVE: CASE EVENT DATE: 201712
